FAERS Safety Report 24847788 (Version 1)
Quarter: 2025Q1

REPORT INFORMATION
  Report Type: Spontaneous
  Country: US (occurrence: US)
  Receive Date: 20250116
  Receipt Date: 20250116
  Transmission Date: 20250409
  Serious: Yes (Hospitalization)
  Sender: DR REDDYS
  Company Number: US-DRL-USA-USA/2025/01/000577

PATIENT
  Age: 8 Decade
  Sex: Female

DRUGS (2)
  1. DOXYCYCLINE [Suspect]
     Active Substance: DOXYCYCLINE
     Indication: Wound complication
  2. CEPHALEXIN [Suspect]
     Active Substance: CEPHALEXIN
     Indication: Wound complication

REACTIONS (5)
  - Condition aggravated [Recovered/Resolved]
  - Malaise [Recovered/Resolved]
  - Nausea [Recovered/Resolved]
  - Flushing [Recovered/Resolved]
  - Drug ineffective for unapproved indication [Unknown]
